FAERS Safety Report 14180809 (Version 8)
Quarter: 2020Q1

REPORT INFORMATION
  Report Type: Report from Study
  Country: US (occurrence: US)
  Receive Date: 20171110
  Receipt Date: 20200210
  Transmission Date: 20200409
  Serious: Yes (Hospitalization)
  Sender: FDA-Public Use
  Company Number: US-ACTELION-A-NJ2017-153307

PATIENT
  Age: 74 Year
  Sex: Female

DRUGS (1)
  1. OPSUMIT [Suspect]
     Active Substance: MACITENTAN
     Indication: PULMONARY ARTERIAL HYPERTENSION
     Dosage: 10 MG, QD
     Route: 048
     Dates: start: 20161212

REACTIONS (12)
  - Fluid retention [Unknown]
  - Unevaluable event [Unknown]
  - Cardiac failure congestive [Unknown]
  - Weight increased [Unknown]
  - Hospitalisation [Unknown]
  - Dyspnoea [Unknown]
  - Malaise [Unknown]
  - Atrial fibrillation [Not Recovered/Not Resolved]
  - Haemoglobin decreased [Recovered/Resolved]
  - Product dose omission [Unknown]
  - Lower gastrointestinal haemorrhage [Recovered/Resolved]
  - Urinary tract infection [Recovered/Resolved]

NARRATIVE: CASE EVENT DATE: 20181010
